FAERS Safety Report 21936628 (Version 1)
Quarter: 2023Q1

REPORT INFORMATION
  Report Type: Report from Study
  Country: FR (occurrence: FR)
  Receive Date: 20230201
  Receipt Date: 20230201
  Transmission Date: 20230418
  Serious: Yes (Hospitalization, Other)
  Sender: FDA-Public Use
  Company Number: FR-AMGEN-FRACT2023015960

PATIENT
  Age: 70 Year
  Sex: Female
  Weight: 65 kg

DRUGS (8)
  1. CARFILZOMIB [Suspect]
     Active Substance: CARFILZOMIB
     Indication: Plasma cell myeloma refractory
     Dosage: 101 MILLIGRAM, PER CHEMO REGIM
     Route: 040
     Dates: start: 20220127, end: 20221214
  2. CARFILZOMIB [Suspect]
     Active Substance: CARFILZOMIB
     Dosage: 101 MILLIGRAM, PER CHEMO REGIM
     Route: 040
     Dates: start: 20230104
  3. ISATUXIMAB [Suspect]
     Active Substance: ISATUXIMAB
     Indication: Plasma cell myeloma refractory
     Dosage: 660 MILLIGRAM, PER CHEMO REGIM
     Route: 040
     Dates: start: 20220127
  4. POMALIDOMIDE [Suspect]
     Active Substance: POMALIDOMIDE
     Indication: Plasma cell myeloma refractory
     Dosage: 2 MILLIGRAM, PER CHEMO REGIM
     Route: 048
     Dates: start: 20220127, end: 20221219
  5. POMALIDOMIDE [Suspect]
     Active Substance: POMALIDOMIDE
     Dosage: 2 MILLIGRAM, PER CHEMO REGIM
     Route: 048
     Dates: start: 20230104
  6. DEXAMETHASONE [Concomitant]
     Active Substance: DEXAMETHASONE
     Dosage: 20-40 MILLIGRAM
     Dates: start: 20220127
  7. VALACYCLOVIR HYDROCHLORIDE [Concomitant]
     Active Substance: VALACYCLOVIR HYDROCHLORIDE
     Dosage: UNK
  8. APIXABAN [Concomitant]
     Active Substance: APIXABAN
     Dosage: UNK

REACTIONS (2)
  - Pancytopenia [Recovered/Resolved]
  - COVID-19 [Recovered/Resolved]

NARRATIVE: CASE EVENT DATE: 20221219
